FAERS Safety Report 7955031 (Version 3)
Quarter: 2013Q3

REPORT INFORMATION
  Report Type: Spontaneous
  Country: BE (occurrence: None)
  Receive Date: 20110503
  Receipt Date: 20130705
  Transmission Date: 20140515
  Serious: Yes (Hospitalization, Other)
  Sender: FDA-Public Use
  Company Number: BE-022468

PATIENT
  Age: 75 Year
  Sex: Male
  Weight: 76.5 kg

DRUGS (3)
  1. CHLORAMBUCIL [Suspect]
     Indication: CHRONIC LYMPHOCYTIC LEUKAEMIA
     Dosage: TABLET 10MG/M2
     Route: 048
     Dates: start: 20110223
  2. PERFUSALGAN (PARACETAMOL) [Concomitant]
  3. CONTRAMAL (TRAMADOL) [Concomitant]

REACTIONS (2)
  - Febrile neutropenia [None]
  - Pharyngitis bacterial [None]
